FAERS Safety Report 16276524 (Version 1)
Quarter: 2019Q2

REPORT INFORMATION
  Report Type: Report from Study
  Country: IT (occurrence: IT)
  Receive Date: 20190505
  Receipt Date: 20190505
  Transmission Date: 20190711
  Serious: Yes (Hospitalization)
  Sender: FDA-Public Use
  Company Number: IT-ELI_LILLY_AND_COMPANY-IT201904011398

PATIENT
  Age: 14 Year
  Sex: Female
  Weight: 66 kg

DRUGS (3)
  1. FLURAZEPAM MONOHYDROCHLORIDE [Suspect]
     Active Substance: FLURAZEPAM MONOHYDROCHLORIDE
     Indication: SUICIDE ATTEMPT
     Dosage: 390 MG, SINGLE
     Route: 048
     Dates: start: 20190204, end: 20190204
  2. LORAZEPAM. [Suspect]
     Active Substance: LORAZEPAM
     Indication: SUICIDE ATTEMPT
     Dosage: 13 MG, UNKNOWN
     Route: 048
     Dates: start: 20190204, end: 20190204
  3. FLUOXETINE HYDROCHLORIDE. [Suspect]
     Active Substance: FLUOXETINE HYDROCHLORIDE
     Indication: SUICIDE ATTEMPT
     Dosage: 60 MG, SINGLE
     Route: 048
     Dates: start: 20190204, end: 20190204

REACTIONS (3)
  - Sopor [Recovering/Resolving]
  - Suicide attempt [Recovering/Resolving]
  - Drug abuse [Recovering/Resolving]

NARRATIVE: CASE EVENT DATE: 20190204
